FAERS Safety Report 9128200 (Version 2)
Quarter: 2013Q1

REPORT INFORMATION
  Report Type: Spontaneous
  Country: JP (occurrence: JP)
  Receive Date: 20130228
  Receipt Date: 20130308
  Transmission Date: 20140127
  Serious: Yes (Death, Life-Threatening, Other)
  Sender: FDA-Public Use
  Company Number: JP-PFIZER INC-2013049084

PATIENT
  Age: 58 Year
  Sex: Female
  Weight: 60 kg

DRUGS (29)
  1. IRINOTECAN HCL [Suspect]
     Indication: COLON CANCER
     Dosage: 200 MG, 1X/DAY
     Route: 041
     Dates: start: 20121009, end: 20121009
  2. IRINOTECAN HCL [Suspect]
     Dosage: 200 MG, 1X/DAY
     Route: 041
     Dates: start: 20121023, end: 20121023
  3. IRINOTECAN HCL [Suspect]
     Dosage: 200 MG, 1X/DAY
     Route: 041
     Dates: start: 20121106, end: 20121106
  4. IRINOTECAN HCL [Suspect]
     Dosage: 200 MG, 1X/DAY
     Route: 041
     Dates: start: 20121120, end: 20121120
  5. IRINOTECAN HCL [Suspect]
     Dosage: 200 MG, 1X/DAY
     Route: 041
     Dates: start: 20121204, end: 20121204
  6. IRINOTECAN HCL [Suspect]
     Dosage: 200 MG, 1X/DAY
     Route: 041
     Dates: start: 20121218, end: 20121218
  7. FLUOROURACIL [Suspect]
     Indication: COLON CANCER
     Dosage: 312.5 MG/M2, (500MG/BODY) 1X/DAY
     Route: 040
     Dates: start: 20121009, end: 20121218
  8. FLUOROURACIL [Suspect]
     Dosage: 1953.1 MG/M2, 3125 MG/BODY D1-2, CYCLIC
     Route: 041
     Dates: start: 20121009, end: 20121218
  9. VECTIBIX [Suspect]
     Indication: COLON CANCER
     Dosage: 300 MG, 1X/DAY
     Route: 041
     Dates: start: 20121009, end: 20121009
  10. VECTIBIX [Suspect]
     Dosage: 300 MG, 1X/DAY
     Route: 041
     Dates: start: 20121023, end: 20121023
  11. VECTIBIX [Suspect]
     Dosage: 230 MG, 1X/DAY
     Route: 041
     Dates: start: 20121106, end: 20121106
  12. VECTIBIX [Suspect]
     Dosage: 230 MG, 1X/DAY
     Route: 041
     Dates: start: 20121120, end: 20121120
  13. VECTIBIX [Suspect]
     Dosage: 230 MG, 1X/DAY
     Route: 041
     Dates: start: 20121204, end: 20121204
  14. VECTIBIX [Suspect]
     Dosage: 230 MG, 1X/DAY
     Route: 041
     Dates: start: 20121218, end: 20121218
  15. ISOVORIN [Concomitant]
     Dosage: UNK
     Dates: start: 20121009, end: 20121218
  16. 5-FU [Concomitant]
     Dosage: UNK
     Dates: start: 20121009, end: 20121218
  17. KYTRIL [Concomitant]
     Dosage: UNK
     Dates: start: 20121009, end: 20121218
  18. DECADRON [Concomitant]
     Dosage: UNK
     Dates: start: 20121009, end: 20121218
  19. TENORMIN [Concomitant]
     Dosage: UNK
     Dates: start: 20090403, end: 20130206
  20. ADALAT CR [Concomitant]
     Dosage: UNK
     Dates: start: 20090403, end: 20130206
  21. RENIVACE [Concomitant]
     Dosage: UNK
     Dates: start: 20090403, end: 20130206
  22. SEIBULE [Concomitant]
     Dosage: UNK
     Dates: start: 20090403, end: 20130206
  23. NAUZELIN [Concomitant]
     Dosage: UNK
     Dates: start: 20121009, end: 20130206
  24. HIRUDOID [Concomitant]
     Dosage: UNK
     Dates: start: 20121009, end: 20130206
  25. MINOMYCIN [Concomitant]
     Dosage: UNK
     Dates: start: 20121009, end: 20130206
  26. HANGE-SHASHIN-TO [Concomitant]
     Dosage: UNK
     Dates: start: 20121009, end: 20130206
  27. PYDOXAL [Concomitant]
     Dosage: UNK
     Dates: start: 20121009, end: 20130206
  28. LASIX [Concomitant]
     Dosage: UNK
     Dates: start: 20121221, end: 20130206
  29. ALDACTONE A [Concomitant]
     Dosage: UNK
     Dates: start: 20121221, end: 20130206

REACTIONS (6)
  - Disease progression [Fatal]
  - Colon cancer [Fatal]
  - Venous thrombosis limb [Not Recovered/Not Resolved]
  - Pulmonary artery thrombosis [Not Recovered/Not Resolved]
  - Leukopenia [Recovered/Resolved]
  - Neutropenia [Recovered/Resolved]
